FAERS Safety Report 18439576 (Version 1)
Quarter: 2020Q4

REPORT INFORMATION
  Report Type: Spontaneous
  Country: FR (occurrence: FR)
  Receive Date: 20201029
  Receipt Date: 20201029
  Transmission Date: 20210114
  Serious: Yes (Life-Threatening)
  Sender: FDA-Public Use
  Company Number: FR-ROCHE-2703565

PATIENT
  Age: 59 Year
  Sex: Male
  Weight: 62 kg

DRUGS (10)
  1. XATRAL LP [Concomitant]
     Active Substance: ALFUZOSIN
  2. PERINDOPRIL ARROW [Concomitant]
     Active Substance: PERINDOPRIL
  3. VALIUM [Suspect]
     Active Substance: DIAZEPAM
     Indication: SUICIDE ATTEMPT
     Route: 048
     Dates: start: 20200403, end: 20200403
  4. NOCTAMIDE [Suspect]
     Active Substance: LORMETAZEPAM
     Indication: SUICIDE ATTEMPT
     Route: 048
     Dates: start: 20200403, end: 20200403
  5. HAVLANE [Suspect]
     Active Substance: LOPRAZOLAM
     Indication: SUICIDE ATTEMPT
     Route: 048
     Dates: start: 20200403, end: 20200403
  6. ABILIFY [Concomitant]
     Active Substance: ARIPIPRAZOLE
  7. PARACETAMOL [Suspect]
     Active Substance: ACETAMINOPHEN
     Indication: SUICIDE ATTEMPT
     Route: 048
     Dates: start: 20200403, end: 20200403
  8. LEVOTHYROXINE. [Concomitant]
     Active Substance: LEVOTHYROXINE
  9. PARKINANE LP [Concomitant]
     Active Substance: TRIHEXYPHENIDYL HYDROCHLORIDE
     Dosage: 5 MG PROLONGED-RELEASE HARD CAPSULES
  10. LOXAPAC [Concomitant]
     Active Substance: LOXAPINE

REACTIONS (7)
  - Blood creatinine increased [Recovered/Resolved]
  - Gamma-glutamyltransferase increased [Recovered/Resolved]
  - Rhabdomyolysis [Recovered/Resolved]
  - Seizure [Recovered/Resolved]
  - Coma [Recovered/Resolved]
  - Toxicity to various agents [Recovered/Resolved]
  - Transaminases increased [Recovered/Resolved]

NARRATIVE: CASE EVENT DATE: 20200403
